FAERS Safety Report 9765171 (Version 2)
Quarter: 2014Q1

REPORT INFORMATION
  Report Type: Spontaneous
  Country: US (occurrence: US)
  Receive Date: 20131217
  Receipt Date: 20140109
  Transmission Date: 20141002
  Serious: No
  Sender: FDA-Public Use
  Company Number: US-TEVA-446589USA

PATIENT
  Age: 29 Year
  Sex: Female
  Weight: 67.65 kg

DRUGS (4)
  1. PARAGARD 380A [Suspect]
     Indication: CONTRACEPTION
     Route: 015
     Dates: start: 20130125, end: 20131105
  2. ACYCLOVIR [Concomitant]
  3. ZANTAC [Concomitant]
  4. PROCARDIA [Concomitant]

REACTIONS (1)
  - Device expulsion [Recovered/Resolved]
